FAERS Safety Report 21819085 (Version 1)
Quarter: 2023Q1

REPORT INFORMATION
  Report Type: Spontaneous
  Country: US (occurrence: None)
  Receive Date: 20230104
  Receipt Date: 20230104
  Transmission Date: 20230417
  Serious: Yes (Other)
  Sender: FDA-Public Use
  Company Number: None

PATIENT
  Age: 66 Year
  Sex: Female
  Weight: 96.75 kg

DRUGS (29)
  1. SYNJARDY [Suspect]
     Active Substance: EMPAGLIFLOZIN\METFORMIN HYDROCHLORIDE
     Indication: Unevaluable event
     Dosage: FREQUENCY : DAILY;?
     Route: 048
     Dates: start: 20221221, end: 20221231
  2. LISINOPRIL [Concomitant]
     Active Substance: LISINOPRIL
  3. VENTOLIN [Concomitant]
     Active Substance: ALBUTEROL SULFATE
  4. DULERA [Concomitant]
     Active Substance: FORMOTEROL FUMARATE DIHYDRATE\MOMETASONE FUROATE
  5. SINGULAIR [Concomitant]
     Active Substance: MONTELUKAST SODIUM
  6. ZOLOFT [Concomitant]
     Active Substance: SERTRALINE HYDROCHLORIDE
  7. ZENPEP [Concomitant]
     Active Substance: PANCRELIPASE AMYLASE\PANCRELIPASE LIPASE\PANCRELIPASE PROTEASE
  8. METHOCARBAMOL [Concomitant]
     Active Substance: METHOCARBAMOL
  9. PANTOPRAZOLE [Concomitant]
     Active Substance: PANTOPRAZOLE
  10. TRESIBA [Concomitant]
     Active Substance: INSULIN DEGLUDEC
  11. ALLEGRA [Concomitant]
     Active Substance: FEXOFENADINE HYDROCHLORIDE
  12. Fluticasone Nas Spray [Concomitant]
  13. Azelastine Nas Spray [Concomitant]
  14. PEPCID [Concomitant]
     Active Substance: FAMOTIDINE
  15. VITAMIN D2 [Concomitant]
     Active Substance: ERGOCALCIFEROL
  16. MAGNESIUM OXIDE [Concomitant]
     Active Substance: MAGNESIUM OXIDE
  17. Potassium CL [Concomitant]
  18. NYSTATIN [Concomitant]
     Active Substance: NYSTATIN
  19. VALACYCLOVIR [Concomitant]
     Active Substance: VALACYCLOVIR HYDROCHLORIDE
  20. Dexamethasone M-Dryl [Concomitant]
  21. Nystatin/Triancinolone ointment [Concomitant]
  22. BUSPIRONE [Concomitant]
     Active Substance: BUSPIRONE HYDROCHLORIDE
  23. Estradoil cream [Concomitant]
  24. TESTOSTERONE [Concomitant]
     Active Substance: TESTOSTERONE
  25. PREDNISONE [Concomitant]
     Active Substance: PREDNISONE
  26. ERYTHROMYCIN [Concomitant]
     Active Substance: ERYTHROMYCIN
  27. IBUPROFEN [Concomitant]
     Active Substance: IBUPROFEN
  28. CBD gel caps [Concomitant]
  29. Braggs Cider Vinegar pills [Concomitant]

REACTIONS (2)
  - Nausea [None]
  - Diarrhoea [None]

NARRATIVE: CASE EVENT DATE: 20221230
